FAERS Safety Report 9960659 (Version 1)
Quarter: 2014Q1

REPORT INFORMATION
  Report Type: Spontaneous
  Country: US (occurrence: US)
  Receive Date: 20140305
  Receipt Date: 20140305
  Transmission Date: 20141002
  Serious: Yes (Other)
  Sender: FDA-Public Use
  Company Number: US-JNJFOC-20140216639

PATIENT
  Age: 42 Year
  Sex: Female

DRUGS (2)
  1. INVOKANA [Suspect]
     Indication: DIABETES MELLITUS
     Route: 048
  2. OTHER THERAPEUTIC MEDICATIONS [Concomitant]

REACTIONS (3)
  - Cardiac failure [Recovered/Resolved]
  - Oedema [Recovered/Resolved]
  - Fungal infection [Recovered/Resolved]
